FAERS Safety Report 14241948 (Version 1)
Quarter: 2017Q4

REPORT INFORMATION
  Report Type: Spontaneous
  Country: RU (occurrence: RU)
  Receive Date: 20171201
  Receipt Date: 20171201
  Transmission Date: 20180321
  Serious: Yes (Death, Other)
  Sender: FDA-Public Use
  Company Number: RU-ASTRAZENECA-2017SF21079

PATIENT
  Age: 61 Year
  Sex: Male

DRUGS (4)
  1. VAMLOSET [Concomitant]
  2. ASPIRIN. [Concomitant]
     Active Substance: ASPIRIN
  3. BRILINTA [Suspect]
     Active Substance: TICAGRELOR
     Indication: MYOCARDIAL INFARCTION
     Route: 048
     Dates: start: 201705
  4. CAPOTEN [Concomitant]
     Active Substance: CAPTOPRIL

REACTIONS (2)
  - Coronary artery occlusion [Fatal]
  - Myocardial infarction [Fatal]
